FAERS Safety Report 16833560 (Version 4)
Quarter: 2024Q1

REPORT INFORMATION
  Report Type: Report from Study
  Country: US (occurrence: US)
  Receive Date: 20190920
  Receipt Date: 20240227
  Transmission Date: 20240410
  Serious: Yes (Hospitalization, Congenital Anomaly)
  Sender: FDA-Public Use
  Company Number: US-PFIZER INC-2017514992

PATIENT
  Age: 7 Month
  Sex: Male
  Weight: 3.718 kg

DRUGS (13)
  1. XELJANZ [Suspect]
     Active Substance: TOFACITINIB CITRATE
     Indication: Juvenile idiopathic arthritis
     Dosage: 5 MG, 2X/DAY
     Route: 064
     Dates: start: 20140815, end: 20180615
  2. COFFEE [Concomitant]
     Active Substance: ARABICA COFFEE BEAN\COFFEE BEAN
     Dosage: 1 SERVING, 1/DAY
     Route: 064
     Dates: start: 20170920, end: 20171015
  3. COFFEE [Concomitant]
     Active Substance: ARABICA COFFEE BEAN\COFFEE BEAN
     Dosage: 1 SERVING, 3.5/WEEK
     Route: 064
     Dates: start: 20171016, end: 20180531
  4. DIETARY SUPPLEMENT [Concomitant]
     Active Substance: DIETARY SUPPLEMENT
     Dosage: 2 PILLS, 1/DAY
     Route: 064
     Dates: start: 20171018, end: 20180615
  5. DIPHTHERIA AND TETANUS TOXOIDS AND PERTUSSIS VACCINE [Concomitant]
     Active Substance: DIPHTHERIA AND TETANUS TOXOIDS AND PERTUSSIS VACCINE
     Dosage: SINGLE DOSE
     Route: 064
     Dates: start: 20160415, end: 20160415
  6. TUMS [Concomitant]
     Active Substance: CALCIUM CARBONATE
     Indication: Dyspepsia
     Dosage: 2 PILL,2.5 WEEKLY
     Route: 064
     Dates: start: 20171201, end: 20180531
  7. TUMS [Concomitant]
     Active Substance: CALCIUM CARBONATE
     Dosage: 2 PILL, 1X/DAY
     Route: 064
     Dates: start: 20180601, end: 20180615
  8. TYLENOL [Concomitant]
     Active Substance: ACETAMINOPHEN
     Indication: Arthralgia
     Dosage: 1 G, WEEKLY
     Route: 064
     Dates: start: 20170920, end: 20180615
  9. TYLENOL [Concomitant]
     Active Substance: ACETAMINOPHEN
     Indication: Headache
  10. FLU VACCINE NOS [Concomitant]
     Dosage: SINGLE DOSE
     Route: 064
     Dates: start: 20171010, end: 20171010
  11. RHOGAM [Concomitant]
     Active Substance: HUMAN RHO(D) IMMUNE GLOBULIN
     Dosage: 1 SHOT/DAY, INJECTED
     Route: 064
     Dates: start: 20180404, end: 20180404
  12. ZYRTEC [Concomitant]
     Active Substance: CETIRIZINE HYDROCHLORIDE
     Indication: Asthma
     Dosage: 10 MG, 1X/DAY
     Route: 064
     Dates: start: 20170920, end: 20180615
  13. ZYRTEC [Concomitant]
     Active Substance: CETIRIZINE HYDROCHLORIDE
     Indication: Hypersensitivity

REACTIONS (6)
  - Maternal exposure during pregnancy [Unknown]
  - Gastroenteritis viral [Unknown]
  - Dehydration [Unknown]
  - Cleft palate [Unknown]
  - Laryngeal cleft [Unknown]
  - Nasal disorder [Unknown]

NARRATIVE: CASE EVENT DATE: 20190207
